FAERS Safety Report 9691853 (Version 1)
Quarter: 2013Q4

REPORT INFORMATION
  Report Type: Spontaneous
  Country: US (occurrence: US)
  Receive Date: 20131117
  Receipt Date: 20131117
  Transmission Date: 20140711
  Serious: Yes (Death, Other)
  Sender: FDA-Public Use
  Company Number: US-ASTRAZENECA-2013SE83773

PATIENT
  Age: 64 Year
  Sex: Female

DRUGS (1)
  1. SYMBICORT [Suspect]
     Indication: CHRONIC OBSTRUCTIVE PULMONARY DISEASE
     Dosage: 160/4.5, 2 PUFFS BID
     Route: 055
     Dates: start: 2013, end: 2013

REACTIONS (6)
  - Myocardial infarction [Fatal]
  - Cardiac arrest [Fatal]
  - Neoplasm malignant [Unknown]
  - Arrhythmia [Unknown]
  - Radiation skin injury [Unknown]
  - Condition aggravated [Unknown]
